FAERS Safety Report 4354939-6 (Version None)
Quarter: 2004Q2

REPORT INFORMATION
  Report Type: 
  Country: None (occurrence: None)
  Receive Date: 20040510
  Receipt Date: 20040427
  Transmission Date: 20050107
  Serious: Yes (Hospitalization, Disabling)
  Sender: FDA-Public Use
  Company Number: FR-BRISTOL-MYERS SQUIBB COMPANY-12574281

PATIENT
  Age: 74 Year
  Sex: Male

DRUGS (6)
  1. LOPRIL [Suspect]
     Route: 048
  2. ECAZIDE TABS 50 MG/25 MG [Suspect]
     Route: 048
  3. NEO-MERCAZOLE TAB [Suspect]
     Route: 048
     Dates: end: 20040316
  4. PREVISCAN [Suspect]
     Route: 048
  5. KERLONE [Suspect]
     Route: 048
  6. HEMIGOXINE NATIVELLE [Suspect]
     Route: 048

REACTIONS (8)
  - AGRANULOCYTOSIS [None]
  - CEREBELLAR SYNDROME [None]
  - ERYTHEMA [None]
  - EYE DISORDER [None]
  - INFECTION [None]
  - OEDEMA PERIPHERAL [None]
  - PHARYNGITIS [None]
  - PYREXIA [None]
